FAERS Safety Report 18407199 (Version 1)
Quarter: 2020Q4

REPORT INFORMATION
  Report Type: Report from Study
  Country: US (occurrence: US)
  Receive Date: 20201020
  Receipt Date: 20201020
  Transmission Date: 20210114
  Serious: Yes (Death, Hospitalization)
  Sender: FDA-Public Use
  Company Number: US-ASTRAZENECA-2020SF34147

PATIENT
  Age: 24824 Day
  Sex: Male
  Weight: 83.9 kg

DRUGS (1)
  1. BRILINTA [Suspect]
     Active Substance: TICAGRELOR
     Indication: MYOCARDIAL INFARCTION
     Route: 048
     Dates: start: 20200506

REACTIONS (2)
  - Pulmonary embolism [Unknown]
  - Death [Fatal]

NARRATIVE: CASE EVENT DATE: 20200812
